FAERS Safety Report 7690912-8 (Version None)
Quarter: 2011Q3

REPORT INFORMATION
  Report Type: 
  Country: None (occurrence: None)
  Receive Date: 20110818
  Receipt Date: 20110810
  Transmission Date: 20111222
  Serious: Yes (Death)
  Sender: FDA-Public Use
  Company Number: IE-AMGEN-IRLSP2011040438

PATIENT
  Sex: Male

DRUGS (11)
  1. ASPIRIN [Concomitant]
  2. LAMISIL [Concomitant]
  3. GALFER [Concomitant]
  4. DONA                               /00336901/ [Concomitant]
  5. LEVOTHYROXINE SODIUM [Concomitant]
  6. TOLTERODINE TARTRATE [Concomitant]
  7. AMLIST [Concomitant]
  8. NEXIUM [Concomitant]
  9. OMACOR                             /00931501/ [Concomitant]
  10. COVERSYL                           /00790702/ [Concomitant]
  11. ARANESP [Suspect]
     Indication: PRODUCT USED FOR UNKNOWN INDICATION
     Dosage: 500 A?G, 3 TIMES/WK
     Route: 058
     Dates: start: 20080509

REACTIONS (1)
  - DEATH [None]
